FAERS Safety Report 5340407-1 (Version None)
Quarter: 2007Q2

REPORT INFORMATION
  Report Type: 
  Country: None (occurrence: None)
  Receive Date: 20070531
  Receipt Date: 20070530
  Transmission Date: 20071010
  Serious: Yes (Other)
  Sender: FDA-Public Use
  Company Number: A0653306A

PATIENT
  Sex: Female

DRUGS (2)
  1. AQUAFRESH TOOTHPASTE [Suspect]
     Indication: DENTAL CLEANING
  2. AQUAFRESH EXTREME CLEAN WHITENING TOOTHPASTE [Suspect]
     Indication: DENTAL CLEANING

REACTIONS (2)
  - ASTHMA [None]
  - THERAPEUTIC RESPONSE UNEXPECTED [None]
